FAERS Safety Report 7131837-6 (Version None)
Quarter: 2010Q4

REPORT INFORMATION
  Report Type: 
  Country: None (occurrence: None)
  Receive Date: 20101202
  Receipt Date: 20101122
  Transmission Date: 20110411
  Serious: No
  Sender: FDA-Public Use
  Company Number: US-BIOGENIDEC-2010BI041647

PATIENT
  Age: 59 Year
  Sex: Female

DRUGS (2)
  1. TYSABRI [Suspect]
     Indication: MULTIPLE SCLEROSIS
     Route: 042
     Dates: start: 20070614
  2. TYSABRI [Suspect]
     Route: 042
     Dates: start: 20050216, end: 20050216

REACTIONS (7)
  - COGNITIVE DISORDER [None]
  - CONSTIPATION [None]
  - DYSPNOEA [None]
  - HAEMORRHOIDS [None]
  - MULTIPLE SCLEROSIS RELAPSE [None]
  - MUSCLE SPASMS [None]
  - TINNITUS [None]
